FAERS Safety Report 6214872-1 (Version None)
Quarter: 2009Q2

REPORT INFORMATION
  Report Type: 
  Country: None (occurrence: None)
  Receive Date: 20090604
  Receipt Date: 20090603
  Transmission Date: 20091009
  Serious: Yes (Other)
  Sender: FDA-Public Use
  Company Number: US-PFIZER INC-2009207240

PATIENT
  Sex: Female

DRUGS (2)
  1. NEURONTIN [Suspect]
     Indication: PAIN
  2. LACTULOSE [Suspect]
     Indication: ENCEPHALITIS
     Dosage: UNK
     Route: 048
     Dates: start: 20090401

REACTIONS (3)
  - ENCEPHALITIS [None]
  - MEDICATION RESIDUE [None]
  - PAIN [None]
